FAERS Safety Report 17031285 (Version 1)
Quarter: 2019Q4

REPORT INFORMATION
  Report Type: Spontaneous
  Country: US (occurrence: US)
  Receive Date: 20191113
  Receipt Date: 20191113
  Transmission Date: 20200122
  Serious: Yes (Hospitalization)
  Sender: FDA-Public Use
  Company Number: None

PATIENT
  Age: 75 Year
  Sex: Male
  Weight: 82.3 kg

DRUGS (9)
  1. KLOR-CON 20 MEQ DAILY [Concomitant]
  2. CARAFATE 1 GM QID [Concomitant]
  3. NEURONTIN 300MG DAILY [Concomitant]
  4. PROTONIX 40MG DAILY [Concomitant]
  5. XARELTO [Suspect]
     Active Substance: RIVAROXABAN
     Indication: ATRIAL FIBRILLATION
     Route: 048
     Dates: start: 20190630, end: 20191017
  6. LASIX 40MG DAILY [Concomitant]
  7. CARDIZEM 120MG DAILY [Concomitant]
  8. LIPITOR [Concomitant]
     Active Substance: ATORVASTATIN CALCIUM
  9. CYMBALTA 30MG BID [Concomitant]

REACTIONS (3)
  - Haemoglobin decreased [None]
  - Faeces discoloured [None]
  - Occult blood positive [None]

NARRATIVE: CASE EVENT DATE: 20191017
